FAERS Safety Report 5755205-4 (Version None)
Quarter: 2008Q2

REPORT INFORMATION
  Report Type: 
  Country: None (occurrence: None)
  Receive Date: 20080602
  Receipt Date: 20080519
  Transmission Date: 20081010
  Serious: Yes (Other)
  Sender: FDA-Public Use
  Company Number: ES-PFIZER INC-2008039287

PATIENT
  Age: 14 Month
  Sex: Male
  Weight: 15 kg

DRUGS (2)
  1. HYDROCORTISONE ACETATE [Suspect]
     Indication: INFANTILE SPASMS
     Dosage: DAILY DOSE:95MG
     Route: 048
  2. HYDROCORTISONE ACETATE [Suspect]

REACTIONS (4)
  - CUSHINGOID [None]
  - HYPERTENSION [None]
  - HYPERTROPHIC CARDIOMYOPATHY [None]
  - SKIN LESION [None]
